FAERS Safety Report 7444956-1 (Version None)
Quarter: 2011Q2

REPORT INFORMATION
  Report Type: 
  Country: None (occurrence: None)
  Receive Date: 20110429
  Receipt Date: 20110421
  Transmission Date: 20111010
  Serious: Yes (Hospitalization)
  Sender: FDA-Public Use
  Company Number: FR-BRISTOL-MYERS SQUIBB COMPANY-15695604

PATIENT
  Age: 79 Year
  Sex: Female

DRUGS (8)
  1. ELISOR TABS 20 MG [Suspect]
     Indication: CARDIOMYOPATHY
     Dosage: 1 DF:1 SCORED TAB/DAY
     Route: 048
     Dates: end: 20110215
  2. NOROXIN [Suspect]
     Indication: URINARY TRACT INFECTION
     Dosage: 1 DF:2 COATED TABS/DAY FORMULATION:400MG
     Route: 048
     Dates: start: 20110212, end: 20110215
  3. SEROPLEX [Suspect]
     Dosage: 1 DF:1 FILM COATED SCORE TAB FORMULATION:SEROPLEX 10MG
     Route: 048
     Dates: end: 20110215
  4. KARDEGIC [Suspect]
     Indication: CARDIOMYOPATHY
     Dosage: 1 DF:1 ORAL POWDER FOR ORAL SOLN FORMULATION:KARDEGIC 75 MG
     Route: 048
     Dates: end: 20110215
  5. NEXIUM [Concomitant]
     Indication: PROPHYLAXIS AGAINST GASTROINTESTINAL ULCER
     Dosage: 1 DF:1 ENTERIC-COATED TABLET  FORMULATION:INEXIUM 40 MG
     Route: 048
  6. PREVISCAN [Suspect]
     Indication: ATRIAL FIBRILLATION
     Dosage: 1 DF:3/4 THEN 1/4  SCORED TABLET  FORMULATION:20 MG
     Route: 048
     Dates: end: 20110215
  7. LEVOTHYROX [Suspect]
     Indication: THYROIDECTOMY
     Dosage: 1 DF:1 SCORED TABLET  FORMULATION:LEVOTHYROX 100 MCG
     Route: 048
     Dates: end: 20110215
  8. CARDENSIEL [Suspect]
     Indication: CARDIOMYOPATHY
     Dosage: 1 DF:1 FILM-COATED SCORED TABLET  FORMULATION:CARDENSIEL 2.5 MG
     Route: 048
     Dates: end: 20110215

REACTIONS (5)
  - INTERNATIONAL NORMALISED RATIO INCREASED [None]
  - URINARY TRACT INFECTION [None]
  - HYPOCALCAEMIA [None]
  - GASTROINTESTINAL HAEMORRHAGE [None]
  - GRAND MAL CONVULSION [None]
